FAERS Safety Report 9920310 (Version 4)
Quarter: 2014Q3

REPORT INFORMATION
  Report Type: Report from Study
  Country: AR (occurrence: AR)
  Receive Date: 20140224
  Receipt Date: 20140929
  Transmission Date: 20150326
  Serious: Yes (Hospitalization, Other)
  Sender: FDA-Public Use
  Company Number: PHHY2014AR022421

PATIENT
  Sex: Male

DRUGS (4)
  1. TOBI [Suspect]
     Active Substance: TOBRAMYCIN
     Indication: CYSTIC FIBROSIS
     Dosage: 1 DF, Q12H
     Dates: start: 201306, end: 201310
  2. TOBI [Suspect]
     Active Substance: TOBRAMYCIN
     Dosage: 1 DF, Q12H
     Dates: start: 201312
  3. TOBI PODHALER [Suspect]
     Active Substance: TOBRAMYCIN
     Indication: BURKHOLDERIA CEPACIA COMPLEX INFECTION
     Dosage: 4 DF, QD (AT NIGHT)
  4. TOBI PODHALER [Suspect]
     Active Substance: TOBRAMYCIN
     Indication: PSEUDOMONAS INFECTION
     Dosage: 4 DF, QD (AT NIGHT)
     Dates: start: 201305, end: 201312

REACTIONS (8)
  - Nasopharyngitis [Recovering/Resolving]
  - Fatigue [Recovering/Resolving]
  - Serratia infection [Recovering/Resolving]
  - Cough [Recovering/Resolving]
  - Depression [Recovering/Resolving]
  - Abnormal behaviour [Recovering/Resolving]
  - Condition aggravated [Recovering/Resolving]
  - Malaise [Recovering/Resolving]

NARRATIVE: CASE EVENT DATE: 2013
